FAERS Safety Report 10206819 (Version 2)
Quarter: 2014Q2

REPORT INFORMATION
  Report Type: Spontaneous
  Country: US (occurrence: US)
  Receive Date: 20140530
  Receipt Date: 20140610
  Transmission Date: 20141212
  Serious: Yes (Other)
  Sender: FDA-Public Use
  Company Number: CHPA2014US007223

PATIENT
  Age: 63 Year
  Sex: Female

DRUGS (3)
  1. EXCEDRIN EXTRA STRENGTH [Suspect]
     Dosage: 14 TO 18 A DAY
  2. EXCEDRIN EXTRA STRENGTH [Suspect]
     Dosage: 4 DF, UNK
  3. EXCEDRIN EXTRA STRENGTH [Suspect]
     Dosage: 2 DF, QD

REACTIONS (16)
  - Dependence [Unknown]
  - Epstein-Barr virus infection [Unknown]
  - Herpes zoster [Recovered/Resolved]
  - Withdrawal syndrome [Unknown]
  - Medication overuse headache [Recovered/Resolved]
  - Dyspepsia [Unknown]
  - Gastrooesophageal reflux disease [Unknown]
  - Hyperhidrosis [Not Recovered/Not Resolved]
  - Lethargy [Not Recovered/Not Resolved]
  - Fatigue [Not Recovered/Not Resolved]
  - Cold sweat [Not Recovered/Not Resolved]
  - Panic attack [Not Recovered/Not Resolved]
  - Hot flush [Not Recovered/Not Resolved]
  - Euphoric mood [Unknown]
  - Wrong technique in drug usage process [Recovered/Resolved]
  - Incorrect dose administered [Unknown]
